FAERS Safety Report 7781190-X (Version None)
Quarter: 2011Q3

REPORT INFORMATION
  Report Type: 
  Country: None (occurrence: None)
  Receive Date: 20110927
  Receipt Date: 20110921
  Transmission Date: 20111222
  Serious: Yes (Hospitalization)
  Sender: FDA-Public Use
  Company Number: US-ABBOTT-11P-163-0857123-00

PATIENT
  Sex: Female
  Weight: 46.308 kg

DRUGS (5)
  1. HUMIRA [Suspect]
     Dates: start: 20110908, end: 20110908
  2. HEPARIN [Concomitant]
     Indication: THROMBOSIS PROPHYLAXIS
  3. HUMIRA [Suspect]
     Indication: CROHN'S DISEASE
     Dates: start: 20110825, end: 20110825
  4. IMURAN [Concomitant]
     Indication: CROHN'S DISEASE
  5. GLUCOZIDE [Concomitant]
     Indication: GLUCOSE TOLERANCE IMPAIRED

REACTIONS (2)
  - ABDOMINAL PAIN [None]
  - INTESTINAL OBSTRUCTION [None]
